FAERS Safety Report 19425901 (Version 1)
Quarter: 2021Q2

REPORT INFORMATION
  Report Type: Spontaneous
  Country: CA (occurrence: CA)
  Receive Date: 20210617
  Receipt Date: 20210617
  Transmission Date: 20210717
  Serious: Yes (Hospitalization, Other)
  Sender: FDA-Public Use
  Company Number: CA-AUROBINDO-AUR-APL-2021-024872

PATIENT
  Age: 68 Year
  Sex: Female
  Weight: 47 kg

DRUGS (9)
  1. CEFTRIAXONE SODIUM. [Suspect]
     Active Substance: CEFTRIAXONE SODIUM
     Indication: PNEUMONIA ASPIRATION
     Dosage: 1 GRAM, ONCE A DAY
     Route: 042
  2. CEFTRIAXONE SODIUM. [Suspect]
     Active Substance: CEFTRIAXONE SODIUM
     Dosage: 1 GRAM, ONCE A DAY
     Route: 042
  3. HYDROMORPHONE HCL [Concomitant]
     Active Substance: HYDROMORPHONE HYDROCHLORIDE
     Indication: PRODUCT USED FOR UNKNOWN INDICATION
     Dosage: UNK
     Route: 065
  4. PANTOPRAZOLE [Concomitant]
     Active Substance: PANTOPRAZOLE
     Indication: PRODUCT USED FOR UNKNOWN INDICATION
     Dosage: UNK
     Route: 065
  5. SANDOZ AMOXI CLAV [Suspect]
     Active Substance: AMOXICILLIN\CLAVULANATE POTASSIUM
     Indication: PNEUMONIA ASPIRATION
     Dosage: 875 MILLIGRAM, TWICE A DAY
     Route: 048
  6. PIPERACILLIN+TAZOBACTAM INJECTION [Suspect]
     Active Substance: PIPERACILLIN SODIUM\TAZOBACTAM SODIUM
     Dosage: 4.5GRAM, ONCE EVERY 6 HOURS
     Route: 042
  7. PIPERACILLIN+TAZOBACTAM INJECTION [Suspect]
     Active Substance: PIPERACILLIN SODIUM\TAZOBACTAM SODIUM
     Dosage: 4.5 GRAM, ONCE EVERY 6 HOURS
     Route: 042
  8. PIPERACILLIN+TAZOBACTAM INJECTION [Suspect]
     Active Substance: PIPERACILLIN SODIUM\TAZOBACTAM SODIUM
     Indication: LEUKOCYTOSIS
     Dosage: 4.5 GRAM, ONCE EVERY 6 HOURS
     Route: 042
  9. LOPERAMIDE HCL [Concomitant]
     Active Substance: LOPERAMIDE HYDROCHLORIDE
     Indication: PRODUCT USED FOR UNKNOWN INDICATION
     Dosage: UNK
     Route: 065

REACTIONS (2)
  - Clostridium difficile infection [Unknown]
  - Fall [Unknown]
